FAERS Safety Report 21546829 (Version 1)
Quarter: 2022Q4

REPORT INFORMATION
  Report Type: Spontaneous
  Country: SE (occurrence: SE)
  Receive Date: 20221103
  Receipt Date: 20221103
  Transmission Date: 20230113
  Serious: Yes (Other)
  Sender: FDA-Public Use
  Company Number: None

PATIENT
  Age: 72 Year
  Sex: Male

DRUGS (1)
  1. MIRTAZAPINE [Suspect]
     Active Substance: MIRTAZAPINE
     Indication: Product used for unknown indication
     Route: 065

REACTIONS (7)
  - Mental impairment [Unknown]
  - Headache [Unknown]
  - Nausea [Unknown]
  - Withdrawal syndrome [Unknown]
  - Anxiety [Unknown]
  - Dizziness [Unknown]
  - Tinnitus [Unknown]
